FAERS Safety Report 4750962-8 (Version None)
Quarter: 2005Q3

REPORT INFORMATION
  Report Type: 
  Country: None (occurrence: None)
  Receive Date: 20050822
  Receipt Date: 20050808
  Transmission Date: 20060218
  Serious: Yes (Life-Threatening)
  Sender: FDA-Public Use
  Company Number: CLOF-10069

PATIENT
  Age: 62 Year
  Sex: Female

DRUGS (10)
  1. CLOFARABINE [Suspect]
     Indication: ACUTE MYELOID LEUKAEMIA
  2. ALLOPURINOL [Concomitant]
  3. ZOFRAN [Concomitant]
  4. DOMPERIDONE [Concomitant]
  5. SEPTRIN [Concomitant]
  6. CODEINE PHOSPHATE [Concomitant]
  7. ATENOLOL [Concomitant]
  8. CYCLIZINE [Concomitant]
  9. PERINDOPRIL [Concomitant]
  10. INDAPAMIDE [Concomitant]

REACTIONS (1)
  - CARDIAC ARREST [None]
